FAERS Safety Report 16955803 (Version 2)
Quarter: 2019Q4

REPORT INFORMATION
  Report Type: Spontaneous
  Country: US (occurrence: US)
  Receive Date: 20191024
  Receipt Date: 20191113
  Transmission Date: 20200122
  Serious: Yes (Death, Other)
  Sender: FDA-Public Use
  Company Number: US-AUROBINDO-AUR-APL-2019-068284

PATIENT
  Age: 23 Year
  Sex: Male

DRUGS (4)
  1. TACROLIMUS. [Suspect]
     Active Substance: TACROLIMUS
     Indication: IMMUNOSUPPRESSANT DRUG THERAPY
     Dosage: UNK
     Route: 065
  2. METHYLPREDNISOLONE. [Suspect]
     Active Substance: METHYLPREDNISOLONE
     Indication: IMMUNOSUPPRESSANT DRUG THERAPY
     Dosage: UNK
     Route: 065
  3. METHYLPREDNISOLONE. [Suspect]
     Active Substance: METHYLPREDNISOLONE
     Indication: GRAFT VERSUS HOST DISEASE
  4. TACROLIMUS. [Suspect]
     Active Substance: TACROLIMUS
     Indication: GRAFT VERSUS HOST DISEASE

REACTIONS (14)
  - Condition aggravated [Unknown]
  - Pain [Unknown]
  - Paraesthesia [Unknown]
  - Sensory disturbance [Unknown]
  - Hypokinesia [Unknown]
  - Leukopenia [Unknown]
  - Biopsy spinal cord [Unknown]
  - Spinal cord oedema [Unknown]
  - Fusarium infection [Fatal]
  - Eye abscess [Recovered/Resolved]
  - Sinus pain [Unknown]
  - Muscular weakness [Unknown]
  - Headache [Recovered/Resolved]
  - Vision blurred [Recovered/Resolved]
